FAERS Safety Report 5603129-5 (Version None)
Quarter: 2008Q1

REPORT INFORMATION
  Report Type: 
  Country: None (occurrence: None)
  Receive Date: 20080123
  Receipt Date: 20080110
  Transmission Date: 20080703
  Serious: Yes (Other)
  Sender: FDA-Public Use
  Company Number: CHPA2008US00656

PATIENT
  Age: 22 Year
  Sex: Male

DRUGS (1)
  1. EXCEDRIN PM (NCH)(ACETAMINOPHEN (PARACETAMOL), DIPHENHYDRAMINE HYDROCH [Suspect]
     Dosage: 100 DF, ONCE/SINGLE, ORAL
     Route: 048
     Dates: start: 20080110

REACTIONS (2)
  - OVERDOSE [None]
  - SOMNOLENCE [None]
